FAERS Safety Report 21174916 (Version 1)
Quarter: 2022Q3

REPORT INFORMATION
  Report Type: Spontaneous
  Country: US (occurrence: None)
  Receive Date: 20220805
  Receipt Date: 20220805
  Transmission Date: 20221027
  Serious: No
  Sender: FDA-Public Use
  Company Number: US-ROCHE-3025816

PATIENT
  Sex: Male

DRUGS (2)
  1. ROZLYTREK [Suspect]
     Active Substance: ENTRECTINIB
     Indication: Malignant neoplasm of unknown primary site
     Route: 048
  2. ROZLYTREK [Suspect]
     Active Substance: ENTRECTINIB
     Route: 048
     Dates: start: 202112

REACTIONS (4)
  - Pain of skin [Unknown]
  - Dysaesthesia [Unknown]
  - Vision blurred [Unknown]
  - Visual acuity reduced [Unknown]
